FAERS Safety Report 4534262-7 (Version None)
Quarter: 2004Q4

REPORT INFORMATION
  Report Type: 
  Country: None (occurrence: None)
  Receive Date: 20041214
  Receipt Date: 20040825
  Transmission Date: 20050328
  Serious: No
  Sender: FDA-Public Use
  Company Number: 2004232409US

PATIENT
  Age: 84 Year
  Sex: Male
  Weight: 70.3 kg

DRUGS (7)
  1. BEXTRA [Suspect]
     Dosage: 10 MG QD
     Dates: start: 20040101, end: 20040801
  2. FLOMAX [Concomitant]
  3. TOPROL-XL [Concomitant]
  4. GLUCOSAMINE [Concomitant]
  5. CALTRATE + D [Concomitant]
  6. MULTIVITAMINS (PANTHENOL, RETINOL, ERGOCALCIFEROL) [Concomitant]
  7. ECOTRIN [Concomitant]

REACTIONS (2)
  - TINNITUS [None]
  - VISUAL DISTURBANCE [None]
